FAERS Safety Report 12485195 (Version 4)
Quarter: 2016Q3

REPORT INFORMATION
  Report Type: Spontaneous
  Country: DE (occurrence: DE)
  Receive Date: 20160621
  Receipt Date: 20160722
  Transmission Date: 20161109
  Serious: Yes (Hospitalization, Disabling, Other)
  Sender: FDA-Public Use
  Company Number: DE-BAYER-2016-117739

PATIENT
  Age: 34 Year
  Sex: Female

DRUGS (1)
  1. JAYDESS [Suspect]
     Active Substance: LEVONORGESTREL
     Indication: CONTRACEPTION
     Dosage: 14 MCG/24HR, CONT
     Route: 015
     Dates: start: 20160116

REACTIONS (7)
  - Asthenia [None]
  - Human chorionic gonadotropin increased [None]
  - Ascites [None]
  - Abdominal pain lower [None]
  - Expired device used [None]
  - Drug ineffective [None]
  - Ectopic pregnancy [None]

NARRATIVE: CASE EVENT DATE: 20160220
